FAERS Safety Report 15782784 (Version 1)
Quarter: 2019Q1

REPORT INFORMATION
  Report Type: Spontaneous
  Country: GB (occurrence: GB)
  Receive Date: 20190102
  Receipt Date: 20190102
  Transmission Date: 20190417
  Serious: Yes (Other)
  Sender: FDA-Public Use
  Company Number: GB-PFIZER INC-2018531596

PATIENT
  Age: 53 Year
  Sex: Male
  Weight: 83 kg

DRUGS (8)
  1. MONTELUKAST [Concomitant]
     Active Substance: MONTELUKAST SODIUM
     Dosage: 1 DF, 1X/DAY (AT NIGHT.)
     Dates: start: 20171009
  2. IBUPROFEN. [Suspect]
     Active Substance: IBUPROFEN
     Dosage: 200 MG, UNK
     Dates: start: 20181122
  3. AZELASTINE. [Concomitant]
     Active Substance: AZELASTINE HYDROCHLORIDE
     Dosage: 2 DF, 1X/DAY (PUFF)
     Dates: start: 20180531
  4. GAVISCON ADVANCED [Concomitant]
     Dosage: 1 DF, UNK (TAKE ONE AFTER EVERY MEAL AND BEFORE BED.)
     Dates: start: 20180531
  5. FOSTAIR [Concomitant]
     Active Substance: BECLOMETHASONE\FORMOTEROL
     Dosage: 4 DF, 1X/DAY (PUFFS.)
     Dates: start: 20180531
  6. RANITIDINE. [Concomitant]
     Active Substance: RANITIDINE
     Dosage: 1 DF, 1X/DAY (AT NIGHT.)
     Dates: start: 20180531
  7. OMEPRAZOLE. [Concomitant]
     Active Substance: OMEPRAZOLE
     Dosage: 1 DF, UNK (TAKE ONE TO BE TAKEN TWICE DAILY OR MAX DOSE)
     Dates: start: 20180531
  8. SALAMOL [SALBUTAMOL] [Concomitant]
     Dosage: 1 TO 2 PUFFS UP TO FOUR TIMES DAILY AS REQUIRED.
     Dates: start: 20180202

REACTIONS (1)
  - Bronchospasm [Recovered/Resolved]

NARRATIVE: CASE EVENT DATE: 20181127
